FAERS Safety Report 15899061 (Version 1)
Quarter: 2019Q1

REPORT INFORMATION
  Report Type: Spontaneous
  Country: FR (occurrence: FR)
  Receive Date: 20190201
  Receipt Date: 20190201
  Transmission Date: 20190417
  Serious: Yes (Hospitalization, Other)
  Sender: FDA-Public Use
  Company Number: FR-GLAXOSMITHKLINE-FR2019015245

PATIENT
  Age: 49 Year
  Sex: Male

DRUGS (3)
  1. DERINOX (NAPHAZOLINE NITRATE + PREDNISOLONE) [Interacting]
     Active Substance: NAPHAZOLINE NITRATE\PREDNISOLONE
     Indication: RHINITIS
     Dosage: 1 DF, Q3D
     Route: 045
     Dates: start: 201811
  2. ANORO ELLIPTA [Suspect]
     Active Substance: UMECLIDINIUM BROMIDE\VILANTEROL TRIFENATATE
     Indication: CHRONIC OBSTRUCTIVE PULMONARY DISEASE
     Dosage: 1 DF, QD
     Route: 050
     Dates: start: 201811
  3. PREVNAR 13 [Interacting]
     Active Substance: PNEUMOCOCCAL 13-VALENT CONJUGATE VACCINE
     Indication: IMMUNISATION
     Dosage: IN TOTAL
     Route: 030
     Dates: start: 201811

REACTIONS (2)
  - Drug interaction [Unknown]
  - Posterior reversible encephalopathy syndrome [Not Recovered/Not Resolved]

NARRATIVE: CASE EVENT DATE: 201811
